FAERS Safety Report 8306134-3 (Version None)
Quarter: 2012Q2

REPORT INFORMATION
  Report Type: 
  Country: None (occurrence: None)
  Receive Date: 20120423
  Receipt Date: 20120413
  Transmission Date: 20120825
  Serious: Yes (Life-Threatening)
  Sender: FDA-Public Use
  Company Number: JP-AMGEN-JPNCT2012025235

PATIENT
  Age: 70 Year
  Sex: Male

DRUGS (2)
  1. PANITUMUMAB [Suspect]
     Indication: COLON CANCER
     Dosage: UNK, Q2WK
     Route: 041
     Dates: start: 20120301
  2. IRINOTECAN HCL [Suspect]
     Indication: COLON CANCER
     Route: 041
     Dates: start: 20120301

REACTIONS (2)
  - PLATELET COUNT DECREASED [None]
  - WHITE BLOOD CELL COUNT DECREASED [None]
